FAERS Safety Report 18431988 (Version 1)
Quarter: 2020Q4

REPORT INFORMATION
  Report Type: Report from Study
  Country: CA (occurrence: CA)
  Receive Date: 20201027
  Receipt Date: 20201027
  Transmission Date: 20210114
  Serious: Yes (Hospitalization, Other)
  Sender: FDA-Public Use
  Company Number: CA-JNJFOC-20200841730

PATIENT
  Age: 65 Year
  Sex: Male

DRUGS (1)
  1. REMICADE [Suspect]
     Active Substance: INFLIXIMAB
     Indication: CROHN^S DISEASE
     Dosage: PATIENT FIT FOR HIS INFUSION ON 25-AUG-2020 AND WAS ADMINISTERED
     Route: 042

REACTIONS (5)
  - Transurethral prostatectomy [Recovered/Resolved]
  - Prostatomegaly [Unknown]
  - Urinary incontinence [Recovering/Resolving]
  - Anorectal infection [Recovering/Resolving]
  - Renal failure [Recovering/Resolving]

NARRATIVE: CASE EVENT DATE: 20200729
